FAERS Safety Report 7748397-9 (Version None)
Quarter: 2011Q3

REPORT INFORMATION
  Report Type: 
  Country: None (occurrence: None)
  Receive Date: 20110913
  Receipt Date: 20110912
  Transmission Date: 20111222
  Serious: Yes (Hospitalization, Other)
  Sender: FDA-Public Use
  Company Number: CA-ABBOTT-11P-028-0846564-00

PATIENT
  Sex: Male
  Weight: 107.6 kg

DRUGS (3)
  1. HUMIRA [Suspect]
     Dates: start: 20090201, end: 20110812
  2. UNKNOWN MEDICATION [Concomitant]
     Indication: PRODUCT USED FOR UNKNOWN INDICATION
     Route: 065
  3. HUMIRA [Suspect]
     Indication: PSORIASIS
     Route: 058
     Dates: end: 20080101

REACTIONS (12)
  - COMA [None]
  - DRUG DOSE OMISSION [None]
  - CONSTIPATION [None]
  - LOWER LIMB FRACTURE [None]
  - PAIN IN EXTREMITY [None]
  - VOMITING [None]
  - CARDIAC ARREST [None]
  - ABDOMINAL PAIN UPPER [None]
  - FALL [None]
  - CHEST PAIN [None]
  - FEELING HOT [None]
  - INFLUENZA LIKE ILLNESS [None]
